FAERS Safety Report 14667308 (Version 1)
Quarter: 2018Q1

REPORT INFORMATION
  Report Type: Spontaneous
  Country: JP (occurrence: JP)
  Receive Date: 20180322
  Receipt Date: 20180322
  Transmission Date: 20180509
  Serious: Yes (Hospitalization, Other)
  Sender: FDA-Public Use
  Company Number: JP-ALVOGEN-2018-ALVOGEN-095543

PATIENT
  Age: 82 Year
  Sex: Female

DRUGS (3)
  1. MIDODRINE HYDROCHLORIDE. [Concomitant]
     Active Substance: MIDODRINE HYDROCHLORIDE
     Indication: ORTHOSTATIC HYPOTENSION
     Dates: start: 201703, end: 2017
  2. RIVASTIGMINE. [Suspect]
     Active Substance: RIVASTIGMINE
     Indication: DEMENTIA ALZHEIMER^S TYPE
     Dosage: THE DOSE OF RIVASTIGMINE WAS INCREASED TO 9 MG IN JANUARY 2017.
     Route: 062
     Dates: start: 201612, end: 201701
  3. RIVASTIGMINE. [Suspect]
     Active Substance: RIVASTIGMINE
     Indication: DEMENTIA ALZHEIMER^S TYPE
     Dosage: THE DOSE OF RIVASTIGMINE WAS INCREASED TO 9 MG IN JANUARY 2017.
     Route: 062
     Dates: start: 201701, end: 20170511

REACTIONS (2)
  - Hepatotoxicity [Recovering/Resolving]
  - Drug-induced liver injury [Recovering/Resolving]

NARRATIVE: CASE EVENT DATE: 2017
